FAERS Safety Report 20713411 (Version 4)
Quarter: 2022Q3

REPORT INFORMATION
  Report Type: Report from Study
  Country: US (occurrence: US)
  Receive Date: 20220415
  Receipt Date: 20220701
  Transmission Date: 20221027
  Serious: No
  Sender: FDA-Public Use
  Company Number: US-GLAXOSMITHKLINE-US2022AMR061725

PATIENT

DRUGS (1)
  1. BELANTAMAB MAFODOTIN [Suspect]
     Active Substance: BELANTAMAB MAFODOTIN
     Indication: Product used for unknown indication
     Dosage: UNK
     Dates: start: 20211216

REACTIONS (6)
  - Keratopathy [Unknown]
  - Visual acuity reduced [Not Recovered/Not Resolved]
  - Keratitis [Unknown]
  - Night blindness [Not Recovered/Not Resolved]
  - Foreign body sensation in eyes [Not Recovered/Not Resolved]
  - Eye disorder [Unknown]

NARRATIVE: CASE EVENT DATE: 20220203
